FAERS Safety Report 14460201 (Version 1)
Quarter: 2018Q1

REPORT INFORMATION
  Report Type: Other
  Country: US (occurrence: US)
  Receive Date: 20180130
  Receipt Date: 20180130
  Transmission Date: 20180509
  Serious: No
  Sender: FDA-Public Use
  Company Number: US-ACORDA-ACO_141423_2017

PATIENT
  Sex: Female

DRUGS (2)
  1. AMPYRA [Suspect]
     Active Substance: DALFAMPRIDINE
     Indication: MULTIPLE SCLEROSIS
     Dosage: 10 MG, Q 12 HRS
     Route: 048
     Dates: start: 20141009, end: 201708
  2. TYSABRI [Suspect]
     Active Substance: NATALIZUMAB
     Indication: PRODUCT USED FOR UNKNOWN INDICATION
     Dosage: UNK
     Route: 065

REACTIONS (7)
  - Throat irritation [Recovering/Resolving]
  - Swollen tongue [Recovering/Resolving]
  - Urinary tract infection [Recovered/Resolved]
  - Deafness [Recovering/Resolving]
  - Multiple sclerosis relapse [Recovering/Resolving]
  - Dysphagia [Recovering/Resolving]
  - Kidney infection [Recovered/Resolved]
